FAERS Safety Report 18297022 (Version 1)
Quarter: 2020Q3

REPORT INFORMATION
  Report Type: Other
  Country: CA (occurrence: CA)
  Receive Date: 20200922
  Receipt Date: 20200922
  Transmission Date: 20201103
  Serious: Yes (Other)
  Sender: FDA-Public Use
  Company Number: CA-APOTEX-2020AP015314

PATIENT
  Age: 8 Year
  Sex: Female

DRUGS (6)
  1. ZOLEDRONIC ACID [Suspect]
     Active Substance: ZOLEDRONIC ACID
     Indication: CALCINOSIS
     Dosage: UNK
     Route: 065
  2. SEVELAMER [Suspect]
     Active Substance: SEVELAMER
     Indication: CALCINOSIS
     Dosage: UNK
     Route: 065
  3. ACETAZOLAMIDE. [Suspect]
     Active Substance: ACETAZOLAMIDE
     Indication: CALCINOSIS
     Dosage: UNK
     Route: 065
  4. SODIUM THIOSULFATE [Suspect]
     Active Substance: SODIUM THIOSULFATE
     Indication: CALCINOSIS
     Dosage: UNK
     Route: 061
  5. NAPROXEN. [Suspect]
     Active Substance: NAPROXEN
     Indication: CALCINOSIS
     Dosage: UNK
     Route: 065
  6. PROBENECID. [Suspect]
     Active Substance: PROBENECID
     Indication: CALCINOSIS
     Dosage: UNK
     Route: 065

REACTIONS (11)
  - C-reactive protein increased [Unknown]
  - Neoplasm progression [Unknown]
  - Leukocytosis [Unknown]
  - Thrombocytosis [Unknown]
  - Red blood cell sedimentation rate increased [Unknown]
  - Calcinosis [Unknown]
  - Drug ineffective [Unknown]
  - Pyrexia [Unknown]
  - Product use issue [Unknown]
  - Off label use [Unknown]
  - Inflammation [Unknown]
